FAERS Safety Report 7477939-6 (Version None)
Quarter: 2011Q2

REPORT INFORMATION
  Report Type: 
  Country: None (occurrence: None)
  Receive Date: 20110511
  Receipt Date: 20110511
  Transmission Date: 20111010
  Serious: No
  Sender: FDA-Public Use
  Company Number: None

PATIENT
  Sex: Female
  Weight: 83.9154 kg

DRUGS (1)
  1. IMIPRAMINE [Suspect]
     Indication: AGORAPHOBIA
     Dosage: 75MG AT BEDTIME PO
     Route: 048
     Dates: start: 20110101, end: 20110410

REACTIONS (1)
  - TRISMUS [None]
